FAERS Safety Report 16167100 (Version 1)
Quarter: 2019Q2

REPORT INFORMATION
  Report Type: Spontaneous
  Country: US (occurrence: US)
  Receive Date: 20190408
  Receipt Date: 20190408
  Transmission Date: 20190711
  Serious: Yes (Hospitalization, Other)
  Sender: FDA-Public Use
  Company Number: US-TRIS PHARMA, INC.-2019TRISPO00422

PATIENT

DRUGS (1)
  1. IBUPROFEN. [Suspect]
     Active Substance: IBUPROFEN
     Indication: PYREXIA
     Dosage: UNK (BEFORE BED TIME)
     Route: 065
     Dates: start: 20180104

REACTIONS (3)
  - Seizure [Unknown]
  - Vomiting [Unknown]
  - Choking [Unknown]

NARRATIVE: CASE EVENT DATE: 20180104
